FAERS Safety Report 4647363-X (Version None)
Quarter: 2005Q2

REPORT INFORMATION
  Report Type: 
  Country: None (occurrence: None)
  Receive Date: 20050427
  Receipt Date: 20050427
  Transmission Date: 20051028
  Serious: Yes (Other)
  Sender: FDA-Public Use
  Company Number: None

PATIENT
  Age: 72 Year
  Sex: Female
  Weight: 63.05 kg

DRUGS (10)
  1. LEVOFLOXACIN [Suspect]
     Indication: URINARY TRACT INFECTION
     Dosage: 500 MG DAILY INTRAVENOU
     Route: 042
     Dates: start: 20050422, end: 20050424
  2. ALBUTEROL [Concomitant]
  3. ALENDRONATE SODIUM [Concomitant]
  4. PREMARIN [Concomitant]
  5. ADVAIR DISKUS 100/50 [Concomitant]
  6. LOSARTAN POTASSIUM [Concomitant]
  7. SINGULAIR [Concomitant]
  8. TOLTERODINE LA [Concomitant]
  9. NABUMETONE [Concomitant]
  10. LANSOPRAZOLE [Concomitant]

REACTIONS (3)
  - ERYTHEMA [None]
  - INFLAMMATION [None]
  - PRURITUS [None]
